FAERS Safety Report 14685806 (Version 1)
Quarter: 2018Q1

REPORT INFORMATION
  Report Type: Report from Study
  Country: ZA (occurrence: ZA)
  Receive Date: 20180327
  Receipt Date: 20180327
  Transmission Date: 20180509
  Serious: Yes (Hospitalization)
  Sender: FDA-Public Use
  Company Number: PHHY2014ZA166965

PATIENT
  Sex: Male

DRUGS (1)
  1. CO-TAREG [Suspect]
     Active Substance: HYDROCHLOROTHIAZIDE\VALSARTAN
     Indication: HYPERTENSION
     Dosage: 1 DF (HYDROCHOLOROTHIAZIDE 12.5 MG AND VALSARTAN 80 MG)
     Route: 048
     Dates: start: 20120830, end: 20141129

REACTIONS (2)
  - Renal disorder [Unknown]
  - Feeling abnormal [Unknown]
